FAERS Safety Report 7953909-6 (Version None)
Quarter: 2011Q4

REPORT INFORMATION
  Report Type: 
  Country: None (occurrence: None)
  Receive Date: 20111202
  Receipt Date: 20111124
  Transmission Date: 20120403
  Serious: Yes (Other)
  Sender: FDA-Public Use
  Company Number: DE-BRISTOL-MYERS SQUIBB COMPANY-16249112

PATIENT
  Sex: Male

DRUGS (5)
  1. ACETAMINOPHEN [Suspect]
     Dosage: PARACETAMOL 500 (ACETAMINOPHEN) TABLETS NO OF TABS: APPROX 10
  2. ABILIFY [Suspect]
     Dosage: NO OF TABS :21
  3. VENLAFAXINE HCL [Suspect]
     Dosage: VENLAFAXIN 75 (VENLAFAXINE) TABLETS  NO OF TABS:60
  4. OMEPRAZOLE [Suspect]
  5. DICLOFENAC SODIUM [Suspect]

REACTIONS (6)
  - SOPOR [None]
  - SUICIDE ATTEMPT [None]
  - MULTIPLE DRUG OVERDOSE [None]
  - TACHYPNOEA [None]
  - TACHYCARDIA [None]
  - HYPOTENSION [None]
